FAERS Safety Report 9112114 (Version 1)
Quarter: 2013Q1

REPORT INFORMATION
  Report Type: Spontaneous
  Country: US (occurrence: US)
  Receive Date: 20130219
  Receipt Date: 20130219
  Transmission Date: 20140127
  Serious: No
  Sender: FDA-Public Use
  Company Number: US-BRISTOL-MYERS SQUIBB COMPANY-17054818

PATIENT
  Age: 68 Year
  Sex: Female
  Weight: 89.25 kg

DRUGS (7)
  1. ORENCIA [Suspect]
     Indication: RHEUMATOID ARTHRITIS
     Dosage: LAST INF:17OCT2012.
     Route: 042
  2. AMLODIPINE [Concomitant]
     Dosage: TAB
  3. BENICAR HCT [Concomitant]
     Dosage: 1DF: 20-12.5MG TAB
  4. METHOTREXATE [Concomitant]
     Dosage: 6 TABS
  5. METHOTREXATE [Concomitant]
  6. FOLIC ACID [Concomitant]
     Dates: end: 20120801
  7. CHOLECALCIFEROL [Concomitant]
     Dosage: 1DF: 50000 UNIT CAPSULE

REACTIONS (6)
  - Nerve compression [Unknown]
  - Nasopharyngitis [Unknown]
  - Neck pain [Unknown]
  - Dizziness [Unknown]
  - Weight decreased [Unknown]
  - Decreased appetite [Unknown]
